FAERS Safety Report 8327415-3 (Version None)
Quarter: 2012Q2

REPORT INFORMATION
  Report Type: 
  Country: None (occurrence: None)
  Receive Date: 20120502
  Receipt Date: 20120423
  Transmission Date: 20120825
  Serious: Yes (Other)
  Sender: FDA-Public Use
  Company Number: US-ELI_LILLY_AND_COMPANY-US201204008998

PATIENT
  Sex: Male

DRUGS (2)
  1. HUMALOG MIX 75/25 [Suspect]
     Indication: DIABETES MELLITUS
     Dosage: 35 U, EACH MORNING
     Dates: start: 20090101
  2. HUMALOG MIX 75/25 [Suspect]
     Dosage: 30 U, AT NIGHT
     Dates: start: 20090101

REACTIONS (4)
  - VISUAL IMPAIRMENT [None]
  - PROSTATE CANCER RECURRENT [None]
  - CONDITION AGGRAVATED [None]
  - VISUAL ACUITY REDUCED [None]
